FAERS Safety Report 5332426-6 (Version None)
Quarter: 2007Q2

REPORT INFORMATION
  Report Type: 
  Country: None (occurrence: None)
  Receive Date: 20070523
  Receipt Date: 20070516
  Transmission Date: 20071010
  Serious: Yes (Life-Threatening)
  Sender: FDA-Public Use
  Company Number: FR-JNJFOC-20070504472

PATIENT
  Age: 91 Year
  Sex: Male
  Weight: 54 kg

DRUGS (7)
  1. REMINYL [Suspect]
     Indication: DEMENTIA ALZHEIMER'S TYPE
     Route: 048
  2. KARDEGIC [Concomitant]
  3. VASTAREL [Concomitant]
  4. MONICOR [Concomitant]
  5. TANAKAN [Concomitant]
  6. TRIATEC [Concomitant]
  7. PRAVASTATIN [Concomitant]

REACTIONS (3)
  - BRADYCARDIA [None]
  - BUNDLE BRANCH BLOCK LEFT [None]
  - SYNCOPE [None]
